FAERS Safety Report 8140469-2 (Version None)
Quarter: 2012Q1

REPORT INFORMATION
  Report Type: 
  Country: None (occurrence: None)
  Receive Date: 20120216
  Receipt Date: 20120213
  Transmission Date: 20120608
  Serious: Yes (Death)
  Sender: FDA-Public Use
  Company Number: US-PFIZER INC-2012038936

PATIENT
  Age: 68 Year
  Sex: Male

DRUGS (1)
  1. PENICILLIN G POTASSIUM [Suspect]
     Indication: ASTHMA

REACTIONS (2)
  - CARDIAC DISORDER [None]
  - DRUG HYPERSENSITIVITY [None]
